FAERS Safety Report 21092313 (Version 3)
Quarter: 2022Q4

REPORT INFORMATION
  Report Type: Spontaneous
  Country: CZ (occurrence: CZ)
  Receive Date: 20220718
  Receipt Date: 20221230
  Transmission Date: 20230113
  Serious: Yes (Hospitalization)
  Sender: FDA-Public Use
  Company Number: CZ-Zentiva-2022-ZT-005270

PATIENT
  Age: 68 Year
  Sex: Male

DRUGS (8)
  1. PAROXETINE [Interacting]
     Active Substance: PAROXETINE
     Indication: Product used for unknown indication
     Dosage: 20 MILLIGRAM, ONCE A DAY (40 MG, 1 DAY )
     Route: 065
  2. PAROXETINE [Interacting]
     Active Substance: PAROXETINE
     Dosage: 40 MILLIGRAM, ONCE A DAY
     Route: 065
  3. PREGABALIN [Suspect]
     Active Substance: PREGABALIN
     Indication: Depression
     Dosage: 150 MILLIGRAM, ONCE A DAY
     Route: 065
  4. ASPIRIN [Suspect]
     Active Substance: ASPIRIN
     Indication: Depression
     Dosage: 100 MILLIGRAM, ONCE A DAY
     Route: 065
  5. PERINDOPRIL [Suspect]
     Active Substance: PERINDOPRIL
     Indication: Depression
     Dosage: 4 MILLIGRAM, ONCE A (8MG, 1 DAY)
     Route: 065
  6. RISPERIDONE [Interacting]
     Active Substance: RISPERIDONE
     Indication: Depression
     Dosage: 2 MILLIGRAM, ONCE A DAY (1MG)
     Route: 065
  7. VORTIOXETINE [Suspect]
     Active Substance: VORTIOXETINE
     Indication: Depression
     Dosage: UNK
     Route: 065
  8. LACTULOSE [Concomitant]
     Active Substance: LACTULOSE
     Indication: Constipation
     Dosage: UNK
     Route: 065

REACTIONS (5)
  - Dysarthria [Recovered/Resolved]
  - Extrapyramidal disorder [Recovering/Resolving]
  - Tremor [Not Recovered/Not Resolved]
  - Labelled drug-drug interaction issue [Recovered/Resolved]
  - Off label use [Unknown]
